FAERS Safety Report 18191912 (Version 1)
Quarter: 2020Q3

REPORT INFORMATION
  Report Type: Spontaneous
  Country: US (occurrence: US)
  Receive Date: 20200825
  Receipt Date: 20200825
  Transmission Date: 20201103
  Serious: Yes (Death, Other)
  Sender: FDA-Public Use
  Company Number: US-SHILPA MEDICARE LIMITED-SML-US-2020-00228

PATIENT
  Age: 29 Year
  Sex: Female

DRUGS (6)
  1. GEMCITABINE, UNKNOWN [Suspect]
     Active Substance: GEMCITABINE
     Indication: BREAST CANCER METASTATIC
     Route: 065
  2. CYCLOPHOSPHAMIDE. [Suspect]
     Active Substance: CYCLOPHOSPHAMIDE
     Indication: BREAST CANCER METASTATIC
     Route: 065
  3. 5?FLUOROURACIL [Suspect]
     Active Substance: FLUOROURACIL
     Indication: BREAST CANCER METASTATIC
     Route: 065
  4. METHOTREXATE. [Suspect]
     Active Substance: METHOTREXATE
     Indication: BREAST CANCER METASTATIC
     Route: 065
  5. XELODA [Suspect]
     Active Substance: CAPECITABINE
     Indication: BREAST CANCER METASTATIC
     Route: 065
  6. CARBOPLATIN. [Suspect]
     Active Substance: CARBOPLATIN
     Indication: BREAST CANCER METASTATIC
     Route: 065

REACTIONS (16)
  - Granulomatous liver disease [Fatal]
  - Liver sarcoidosis [Fatal]
  - Neoplasm progression [Unknown]
  - Pulmonary fibrosis [Unknown]
  - Pulmonary congestion [Unknown]
  - Pneumonia [Fatal]
  - Respiratory failure [Fatal]
  - Pulmonary granuloma [Fatal]
  - Non-Hodgkin^s lymphoma [Fatal]
  - Granuloma [Unknown]
  - Splenic granuloma [Fatal]
  - Toxicity to various agents [Unknown]
  - Pulmonary sarcoidosis [Fatal]
  - Pulmonary oedema [Unknown]
  - Pulmonary alveolar haemorrhage [Unknown]
  - Drug ineffective [Unknown]
